FAERS Safety Report 25947391 (Version 1)
Quarter: 2025Q4

REPORT INFORMATION
  Report Type: Spontaneous
  Country: CA (occurrence: CA)
  Receive Date: 20251022
  Receipt Date: 20251022
  Transmission Date: 20260117
  Serious: Yes (Other)
  Sender: AUROBINDO
  Company Number: CA-AUROBINDO-AUR-APL-2025-052924

PATIENT
  Age: 74 Year
  Sex: Female
  Weight: 58.957 kg

DRUGS (1)
  1. PRAVASTATIN [Suspect]
     Active Substance: PRAVASTATIN
     Indication: Hypercholesterolaemia
     Dosage: UNK
     Route: 048

REACTIONS (2)
  - Pain in extremity [Recovered/Resolved]
  - Product substitution issue [Recovered/Resolved]
